FAERS Safety Report 20012247 (Version 4)
Quarter: 2022Q1

REPORT INFORMATION
  Report Type: Spontaneous
  Country: US (occurrence: None)
  Receive Date: 20211029
  Receipt Date: 20220314
  Transmission Date: 20220424
  Serious: Yes (Hospitalization)
  Sender: FDA-Public Use
  Company Number: US-FRESENIUS KABI-FK202111704

PATIENT
  Age: 73 Year
  Sex: Male
  Weight: 73 kg

DRUGS (43)
  1. FLUDARABINE [Suspect]
     Active Substance: FLUDARABINE PHOSPHATE
     Indication: Diffuse large B-cell lymphoma
     Dosage: 45 MG X 1 X 1 DAYS, 1 IN 1 D
     Route: 042
     Dates: start: 20210812, end: 20210812
  2. FLUDARABINE [Suspect]
     Active Substance: FLUDARABINE PHOSPHATE
     Dosage: 45 MG X 1 X 1 DAYS, 1 IN 1 D
     Route: 042
     Dates: start: 20210813, end: 20210813
  3. FLUDARABINE [Suspect]
     Active Substance: FLUDARABINE PHOSPHATE
     Dosage: 45 MG X 1 X 1 DAYS, 1 IN 1 D
     Route: 042
     Dates: start: 20210814, end: 20210814
  4. CYCLOPHOSPHAMIDE [Suspect]
     Active Substance: CYCLOPHOSPHAMIDE
     Indication: Diffuse large B-cell lymphoma
     Dosage: 560 MG, 1 X 1 DAY, 1 IN 1 DAY
     Route: 042
     Dates: start: 20210812, end: 20210812
  5. CYCLOPHOSPHAMIDE [Suspect]
     Active Substance: CYCLOPHOSPHAMIDE
     Dosage: 560 MG, 1 X 1 DAY, 1 IN 1 DAY
     Route: 042
     Dates: start: 20210813, end: 20210813
  6. CYCLOPHOSPHAMIDE [Suspect]
     Active Substance: CYCLOPHOSPHAMIDE
     Dosage: 560 MG, 1 X 1 DAY, 1 IN 1 DAY
     Route: 042
     Dates: start: 20210814, end: 20210814
  7. GABAPENTIN [Concomitant]
     Active Substance: GABAPENTIN
     Indication: Post herpetic neuralgia
     Dosage: 1200 MG X 3 X 1 DAYS, 3 IN 1 D, PO?ONGOING
     Route: 048
     Dates: start: 20210512
  8. GABAPENTIN [Concomitant]
     Active Substance: GABAPENTIN
     Indication: Adverse event
     Dosage: 1200 MG X 1 X 8 HOURS, 1 IN 8 HR, PO
     Route: 048
     Dates: start: 20211011, end: 20211021
  9. LOSARTAN [Concomitant]
     Active Substance: LOSARTAN
     Indication: Product used for unknown indication
     Dosage: 100 MG X 1 X 2 DAYS, 1 IN 2 D, PO?UNKNOWN - ONGOING
     Route: 048
  10. ALENDRONATE SODIUM [Concomitant]
     Active Substance: ALENDRONATE SODIUM
     Indication: Prophylaxis
     Dosage: 70 MG X 1 X 1 WEEKS, 1 IN 1 WK, PO?UNKNOWN - ONGOING
     Route: 048
  11. ALLOPURINOL [Concomitant]
     Active Substance: ALLOPURINOL
     Indication: Prophylaxis
     Dosage: 300 MG X 1 X 2 DAYS, 1 IN 2 D, PO?UNKNOWN - ONGOING
     Route: 048
  12. AMITRIPTYLINE [Concomitant]
     Active Substance: AMITRIPTYLINE
     Indication: Prophylaxis
     Dosage: 75 MG X 1 X 1 DAYS, 1 IN 1 D, PO?UNKNOWN - ONGOING
     Route: 048
  13. CALCIUM CARBONATE [Concomitant]
     Active Substance: CALCIUM CARBONATE
     Indication: Prophylaxis
     Dosage: 600 MG X 2 X 1 DAYS, 2 IN 1 D, PO?UNKNOWN - ONGOING
     Route: 048
  14. CLOBETASOL [Concomitant]
     Active Substance: CLOBETASOL
     Indication: Prophylaxis
     Dosage: 0.05 PERCENT X PRN, PRN, TOP?UNKNOWN - ONGOING
     Route: 061
  15. ESOMEPRAZOLE [Concomitant]
     Active Substance: ESOMEPRAZOLE
     Indication: Prophylaxis
     Dosage: 20 MG X 1 X 1 DAYS, 1 IN 1 D, PO?UNKNOWN - ONGOING
     Route: 048
  16. FLUDROCORTISONE [Concomitant]
     Active Substance: FLUDROCORTISONE
     Indication: Prophylaxis
     Dosage: 0.1 MG X 1 X 2 DAYS, 1 IN 2 D, PO?ONGOING
     Route: 048
     Dates: start: 20210606
  17. SULFAMETHOXAZOLE\TRIMETHOPRIM [Concomitant]
     Active Substance: SULFAMETHOXAZOLE\TRIMETHOPRIM
     Indication: Prophylaxis
     Dosage: 800-160 MG X 3 X 1 WEEKS, 3IN 1 WK, PO?UNKNOWN - ONGOING
     Route: 048
  18. DAPTOMYCIN [Concomitant]
     Active Substance: DAPTOMYCIN
     Indication: Prophylaxis
     Dosage: 400 MG X PRN, PRN
     Route: 042
     Dates: start: 20210919, end: 20210923
  19. MAGNESIUM HYDROXIDE/SIMETICONE/ALUMINIUM HYDROXIDE [Concomitant]
     Indication: Prophylaxis
     Dosage: 30 ML X 1 X 6 HOURS, 1 IN 6 HR, PO
     Route: 048
     Dates: start: 20210917, end: 20210924
  20. VALACYCLOVIR HYDROCHLORIDE [Concomitant]
     Active Substance: VALACYCLOVIR HYDROCHLORIDE
     Indication: Prophylaxis
     Dosage: 500 MG X 2 X 1 DAYS, 2 IN 1 D, PO?ONGOING
     Route: 048
     Dates: start: 20210812
  21. METFORMIN [Concomitant]
     Active Substance: METFORMIN HYDROCHLORIDE
     Indication: Type 2 diabetes mellitus
     Dosage: 750 MG X 2 X 1 DAYS, 2 IN 1 D, PO?UNKNOWN - ONGOING
     Route: 048
  22. MEGLUMINE AMIDOTRIZOATE [Concomitant]
     Indication: Ultrasound abdomen
     Dosage: DIATRIZOATE MEGLUMIN-SODIUM?15 ML X 1 X 12 HOURS, 1 IN 12 HR, PO
     Route: 048
     Dates: start: 20210916, end: 20210916
  23. ENOXAPARIN [Concomitant]
     Active Substance: ENOXAPARIN
     Indication: Deep vein thrombosis
     Dosage: 1.5, 40 MG/KG X 1 X 2 DAYS, 1 IN 2 D, SC
     Route: 058
     Dates: start: 20210914, end: 20210924
  24. GLUCAGON [Concomitant]
     Active Substance: GLUCAGON
     Indication: Type 2 diabetes mellitus
     Dosage: 1 MG X 3 X 1 DAYS, 3 IN 1 D, IM
     Route: 030
     Dates: start: 20210812, end: 20210924
  25. HYDRALAZINE [Concomitant]
     Active Substance: HYDRALAZINE HYDROCHLORIDE
     Indication: Hypertension
     Dosage: 25 MG X ONCE, ONCE, PO
     Route: 048
     Dates: start: 20210922, end: 20210922
  26. HYDROCORTISONE [Concomitant]
     Active Substance: HYDROCORTISONE
     Indication: Eosinophilic pustular folliculitis
     Dosage: .5 PERCENT X 2 X 1 DAY, 2 IN 1 DAY, TOP
     Route: 061
     Dates: start: 20210912, end: 20210924
  27. INSULIN GLARGINE [Concomitant]
     Active Substance: INSULIN GLARGINE
     Indication: Type 2 diabetes mellitus
     Dosage: 1 TO 10 PRESSOR UNITS X 3 X 1 DAYS, 3 IN 1 D, SC
     Route: 058
     Dates: start: 20210421, end: 20210924
  28. LEVETIRACETAM [Concomitant]
     Active Substance: LEVETIRACETAM
     Indication: Prophylaxis
     Dosage: 500 MG X 1 X 12 HOURS, 1 IN 12 HR, UNK
     Route: 065
     Dates: start: 20210812, end: 20210923
  29. MAGNESIUM OXIDE [Concomitant]
     Active Substance: MAGNESIUM OXIDE
     Indication: Mineral supplementation
     Dosage: 800 (9/08) 400 (9/17) 400 (9/22) MG X ONCE, ONCE, PO
     Route: 048
     Dates: start: 20210908, end: 20210922
  30. MAGNESIUM OXIDE [Concomitant]
     Active Substance: MAGNESIUM OXIDE
     Indication: Hypomagnesaemia
  31. MAGNESIUM SULFATE [Concomitant]
     Active Substance: MAGNESIUM SULFATE
     Indication: Mineral supplementation
     Dosage: 1 (8/14) 2 (9/12-9/23) G X ONCE, ONCE, INTRAVENOUS
     Route: 042
     Dates: start: 20210814, end: 20210923
  32. MAGNESIUM SULFATE [Concomitant]
     Active Substance: MAGNESIUM SULFATE
     Indication: Hypomagnesaemia
  33. OLANZAPINE [Concomitant]
     Active Substance: OLANZAPINE
     Indication: Substance-induced psychotic disorder
     Dosage: 2.5 MG X PRN, PRN, PO
     Route: 048
     Dates: start: 20210904, end: 20210924
  34. PANTOPRAZOLE [Concomitant]
     Active Substance: PANTOPRAZOLE
     Indication: Prophylaxis
     Dosage: 40 MG X 1 X 2 DAYS, 1 IN 2 D, PO
     Route: 048
     Dates: start: 20210812, end: 20210924
  35. POTASSIUM CHLORIDE [Concomitant]
     Active Substance: POTASSIUM CHLORIDE
     Indication: Prophylaxis
     Dosage: 20 (8/14 - 8/15) 40 (8/31 - 9/23) 20 MEQ X ONCE, ONCE, PO
     Route: 048
     Dates: start: 20210814, end: 20210923
  36. SODIUM CHLORIDE [Concomitant]
     Active Substance: SODIUM CHLORIDE
     Indication: Prophylaxis
     Dosage: .9 PERCENT X PRN, PRN, INTRAVENOUS (NOT OTHERWISE SPECIFIED)
     Route: 042
     Dates: start: 20210812, end: 20210921
  37. FILGRASTIM [Concomitant]
     Active Substance: FILGRASTIM
     Indication: Neutrophil count decreased
     Dosage: TBO- FILGRASTIM?300 MG X PRN, PRN, SC
     Route: 058
     Dates: start: 20210910, end: 20210916
  38. TRAMADOL [Concomitant]
     Active Substance: TRAMADOL
     Indication: Post herpetic neuralgia
     Dosage: 25 (8/21) 50 (9/11-9/24) MG X ONCE, ONCE, PO
     Route: 048
     Dates: start: 20210821, end: 20210924
  39. TRAMADOL [Concomitant]
     Active Substance: TRAMADOL
     Indication: Aggression
  40. TRIAMCINOLONE [Concomitant]
     Active Substance: TRIAMCINOLONE
     Indication: Prophylaxis
     Dosage: .1 PERCENT X 2 X 1 DAY, 2 IN 1 DAY, TOP
     Route: 061
     Dates: start: 20210912, end: 20210912
  41. VANCOMYCIN [Concomitant]
     Active Substance: VANCOMYCIN
     Indication: Prophylaxis
     Dosage: 1000 (8/28-9/19) 1250 (9/15-9/17) MG X 1 X 12 HOURS, 1 IN 12 HR, IV (NOT OTHERWISE SPECIFIED)
     Route: 042
     Dates: start: 20210828, end: 20210919
  42. CYANOCOBALAMIN [Concomitant]
     Active Substance: CYANOCOBALAMIN
     Indication: Supplementation therapy
     Dosage: 1000 MG X 1 X 2 DAYS, 1 IN 2 D, PO?ONGOING
     Route: 048
     Dates: start: 20210820
  43. MIDODRINE [Concomitant]
     Active Substance: MIDODRINE
     Indication: Orthostatic hypotension
     Dosage: 2.5 MG X 1 X 8 HOURS, 1 IN 8 HR, PO?UNKNOWN - ONGOING
     Route: 048

REACTIONS (1)
  - Mental status changes [Recovered/Resolved]

NARRATIVE: CASE EVENT DATE: 20211011
